FAERS Safety Report 9322455 (Version 1)
Quarter: 2013Q2

REPORT INFORMATION
  Report Type: Spontaneous
  Country: US (occurrence: US)
  Receive Date: 20130531
  Receipt Date: 20130531
  Transmission Date: 20140414
  Serious: Yes (Other)
  Sender: FDA-Public Use
  Company Number: US-009507513-1305USA017960

PATIENT
  Sex: Female

DRUGS (4)
  1. NUVARING [Suspect]
     Indication: CONTRACEPTION
     Dosage: UNK
     Route: 067
     Dates: start: 20041217, end: 200502
  2. NUVARING [Suspect]
     Dosage: UNK
     Route: 067
     Dates: start: 20060409, end: 200608
  3. NUVARING [Suspect]
     Dosage: UNK
     Route: 067
     Dates: start: 20070114, end: 200702
  4. NUVARING [Suspect]
     Dosage: UNK
     Route: 067
     Dates: start: 20100312, end: 20100814

REACTIONS (2)
  - Abortion spontaneous [Unknown]
  - Maternal exposure before pregnancy [Unknown]
